FAERS Safety Report 21980139 (Version 4)
Quarter: 2023Q2

REPORT INFORMATION
  Report Type: Spontaneous
  Country: CA (occurrence: CA)
  Receive Date: 20230210
  Receipt Date: 20230612
  Transmission Date: 20230721
  Serious: Yes (Other)
  Sender: FDA-Public Use
  Company Number: CA-002147023-NVSC2023CA025543

PATIENT
  Age: 63 Year
  Sex: Female

DRUGS (2)
  1. ADALIMUMAB [Suspect]
     Active Substance: ADALIMUMAB
     Indication: Psoriatic arthropathy
     Dosage: 40 MG, QW (1 EVERY 1 WEEKS)
     Route: 058
  2. ADALIMUMAB [Suspect]
     Active Substance: ADALIMUMAB
     Dosage: 20 MG, QW
     Route: 065

REACTIONS (9)
  - Rhinorrhoea [Unknown]
  - Tympanic membrane perforation [Recovered/Resolved]
  - Fatigue [Unknown]
  - Pain [Unknown]
  - Headache [Unknown]
  - Ear infection [Recovered/Resolved]
  - Cystitis [Unknown]
  - Infection [Unknown]
  - Product use issue [Unknown]
